FAERS Safety Report 4576578-4 (Version None)
Quarter: 2005Q1

REPORT INFORMATION
  Report Type: 
  Country: None (occurrence: None)
  Receive Date: 20050119
  Receipt Date: 20040922
  Transmission Date: 20050727
  Serious: Yes (Other)
  Sender: FDA-Public Use
  Company Number: A03200403262

PATIENT
  Age: 74 Year
  Sex: Female
  Weight: 63.5036 kg

DRUGS (3)
  1. PLAVIX [Suspect]
     Indication: ANGINA UNSTABLE
     Dosage: 75 MG QD - ORAL
     Route: 048
     Dates: start: 20040109, end: 20040709
  2. PLAVIX [Suspect]
     Indication: POSTOPERATIVE CARE
     Dosage: 75 MG QD - ORAL
     Route: 048
     Dates: start: 20040109, end: 20040709
  3. PLAVIX [Suspect]
     Indication: STENT PLACEMENT
     Dosage: 75 MG QD - ORAL
     Route: 048
     Dates: start: 20040109, end: 20040709

REACTIONS (4)
  - FATIGUE [None]
  - GINGIVAL BLEEDING [None]
  - INCREASED TENDENCY TO BRUISE [None]
  - RETINAL HAEMORRHAGE [None]
